FAERS Safety Report 9324099 (Version 1)
Quarter: 2013Q2

REPORT INFORMATION
  Report Type: Spontaneous
  Country: DE (occurrence: DE)
  Receive Date: 20130603
  Receipt Date: 20130603
  Transmission Date: 20140414
  Serious: Yes (Death, Other)
  Sender: FDA-Public Use
  Company Number: DE-ASTELLAS-2013US005691

PATIENT
  Sex: Male

DRUGS (3)
  1. TARCEVA [Suspect]
     Indication: NON-SMALL CELL LUNG CANCER
     Dosage: UNK MG, UID/QD
     Route: 065
     Dates: start: 20120608, end: 201207
  2. PEMETREXED [Concomitant]
     Indication: NON-SMALL CELL LUNG CANCER
     Dosage: UNK
     Route: 065
     Dates: start: 201207
  3. CARBOPLATIN [Concomitant]
     Indication: NON-SMALL CELL LUNG CANCER
     Dosage: UNK
     Route: 065
     Dates: start: 201207

REACTIONS (2)
  - Death [Fatal]
  - Malignant neoplasm progression [Not Recovered/Not Resolved]
